FAERS Safety Report 15258102 (Version 1)
Quarter: 2018Q3

REPORT INFORMATION
  Report Type: Report from Study
  Country: AT (occurrence: AT)
  Receive Date: 20180809
  Receipt Date: 20180809
  Transmission Date: 20181010
  Serious: Yes (Death, Hospitalization)
  Sender: FDA-Public Use
  Company Number: AT-SUN PHARMACEUTICAL INDUSTRIES LTD-2018R1-180884

PATIENT
  Age: 86 Year
  Sex: Female

DRUGS (1)
  1. METHOTREXATE. [Suspect]
     Active Substance: METHOTREXATE
     Indication: PRODUCT USED FOR UNKNOWN INDICATION
     Dosage: 10 MG, DAILY
     Route: 048

REACTIONS (9)
  - Bone marrow failure [Fatal]
  - Nausea [Unknown]
  - Renal failure [Unknown]
  - Hepatic enzyme increased [Unknown]
  - Vertigo [Unknown]
  - Incorrect dose administered [Unknown]
  - Pyrexia [Unknown]
  - Pancytopenia [Unknown]
  - Sepsis [Fatal]
